FAERS Safety Report 5394017-0 (Version None)
Quarter: 2007Q3

REPORT INFORMATION
  Report Type: 
  Country: None (occurrence: None)
  Receive Date: 20070723
  Receipt Date: 20070116
  Transmission Date: 20080115
  Serious: No
  Sender: FDA-Public Use
  Company Number: A0635758A

PATIENT
  Age: 79 Year
  Sex: Female

DRUGS (4)
  1. AVANDIA [Suspect]
     Route: 048
  2. BYETTA [Suspect]
     Dosage: 5MCG TWICE PER DAY
     Route: 058
     Dates: start: 20060301, end: 20060301
  3. ACTOS [Suspect]
  4. GLIPIZIDE [Concomitant]

REACTIONS (1)
  - MUSCULAR WEAKNESS [None]
